FAERS Safety Report 17201053 (Version 36)
Quarter: 2023Q1

REPORT INFORMATION
  Report Type: Spontaneous
  Country: GB (occurrence: GB)
  Receive Date: 20191226
  Receipt Date: 20230214
  Transmission Date: 20230417
  Serious: Yes (Hospitalization, Disabling, Congenital Anomaly, Other)
  Sender: FDA-Public Use
  Company Number: GB-MERCK-1007GBR00039B1

PATIENT
  Age: 1 Day
  Sex: Male
  Weight: 3.1 kg

DRUGS (85)
  1. NEVIRAPINE [Suspect]
     Active Substance: NEVIRAPINE
     Indication: Foetal exposure during pregnancy
     Dosage: UNK (MATERNAL DOSE: 400MG QD)
     Route: 064
  2. NEVIRAPINE [Suspect]
     Active Substance: NEVIRAPINE
     Dosage: UNK (MATERNAL DOSE: 400 MG QD)
     Route: 064
     Dates: start: 20090101, end: 20100610
  3. NEVIRAPINE [Suspect]
     Active Substance: NEVIRAPINE
     Dosage: UNK (MODIFIED-RELEASE TABLET)
     Route: 064
     Dates: start: 20090922, end: 20100610
  4. NEVIRAPINE [Suspect]
     Active Substance: NEVIRAPINE
     Dosage: UNK (MATERNAL DOSE: 400MG QD)
     Route: 064
     Dates: start: 20100610
  5. NEVIRAPINE [Suspect]
     Active Substance: NEVIRAPINE
     Dosage: UNK (MATERNAL DOSE: 400MG QD)
     Route: 064
     Dates: start: 20100610
  6. NEVIRAPINE [Suspect]
     Active Substance: NEVIRAPINE
     Dosage: UNK
     Route: 064
     Dates: start: 20100610
  7. NEVIRAPINE [Suspect]
     Active Substance: NEVIRAPINE
     Dosage: UNK (MATERNAL DOSE: 400 MG QD)
     Route: 064
     Dates: start: 20090101, end: 20100610
  8. NEVIRAPINE [Suspect]
     Active Substance: NEVIRAPINE
     Dosage: UNK
     Route: 064
     Dates: start: 20090101, end: 20100610
  9. LAMIVUDINE [Suspect]
     Active Substance: LAMIVUDINE
     Indication: Foetal exposure during pregnancy
     Dosage: UNK (MATERNAL DOSE: 300 MG, QD)
     Route: 064
     Dates: start: 20100601
  10. LAMIVUDINE [Suspect]
     Active Substance: LAMIVUDINE
     Dosage: UNK (MATERNAL DOSE: 300 MG, QD)
     Route: 064
     Dates: start: 20090101, end: 20100610
  11. LAMIVUDINE [Suspect]
     Active Substance: LAMIVUDINE
     Dosage: UNK
     Route: 064
     Dates: start: 20090922, end: 20100610
  12. LAMIVUDINE [Suspect]
     Active Substance: LAMIVUDINE
     Dosage: UNK MOTHER DOSE (DOSE# 1. START DATE: MONTH UNKNOWN)
     Route: 064
     Dates: start: 20100610, end: 20100610
  13. LAMIVUDINE [Suspect]
     Active Substance: LAMIVUDINE
     Dosage: UNK (MATERNAL DOSE: 150 MG, QD)
     Route: 064
     Dates: start: 20100610, end: 20100610
  14. LAMIVUDINE [Suspect]
     Active Substance: LAMIVUDINE
     Dosage: UNK (MATERNAL DOSE: 150 MG)
     Route: 064
     Dates: start: 20100601
  15. LAMIVUDINE [Suspect]
     Active Substance: LAMIVUDINE
     Dosage: UNK (MATERNAL DOSE: 300 MG, QD)
     Route: 064
     Dates: start: 20100610
  16. LAMIVUDINE [Suspect]
     Active Substance: LAMIVUDINE
     Dosage: UNK (MATERNAL DOSE: 300 MG, QD)
     Route: 064
  17. LAMIVUDINE [Suspect]
     Active Substance: LAMIVUDINE
     Dosage: UNK (MATERNAL DOSE: 300 MG, QD)
     Route: 064
  18. LAMIVUDINE [Suspect]
     Active Substance: LAMIVUDINE
     Dosage: UNK (MATERNAL DOSE: UNK)
     Route: 064
     Dates: start: 20100610
  19. LAMIVUDINE [Suspect]
     Active Substance: LAMIVUDINE
     Dosage: UNK (MATERNAL DOSE: DOSE 1. START DATE: MONTH UNKNOW N
     Route: 064
     Dates: start: 20100610
  20. LAMIVUDINE [Suspect]
     Active Substance: LAMIVUDINE
     Dosage: UNK (MATERNAL DOSE: 150 MG, QD)
     Route: 064
  21. LAMIVUDINE [Suspect]
     Active Substance: LAMIVUDINE
     Dosage: UNK (MATERNAL DOSE: 300 MG, QD)
     Route: 064
     Dates: start: 20090101
  22. LAMIVUDINE [Suspect]
     Active Substance: LAMIVUDINE
     Dosage: UNK (MATERNAL DOSE: 300 MG, QD)
     Route: 064
     Dates: start: 20090101, end: 20100610
  23. LAMIVUDINE [Suspect]
     Active Substance: LAMIVUDINE
     Dosage: UNK (MATERNAL DOSE: 150 MG, QD)
     Route: 064
  24. LAMIVUDINE [Suspect]
     Active Substance: LAMIVUDINE
     Dosage: UNK (MATERNAL DOSE: 150 MG, QD)
     Route: 064
  25. LAMIVUDINE [Suspect]
     Active Substance: LAMIVUDINE
     Dosage: UNK (MATERNAL DOSE: 300 MG, QD)
     Route: 064
     Dates: start: 20090101, end: 20100610
  26. LAMIVUDINE [Suspect]
     Active Substance: LAMIVUDINE
     Dosage: UNK (MATERNAL DOSE: 150 MG)
     Route: 064
  27. ZIDOVUDINE [Suspect]
     Active Substance: ZIDOVUDINE
     Indication: Foetal exposure during pregnancy
     Dosage: UNK (MATERNAL DOSE: 600 MG, QD)
     Route: 064
  28. ZIDOVUDINE [Suspect]
     Active Substance: ZIDOVUDINE
     Dosage: UNK (MOTHER DOSE: 600 MG, QD)
     Route: 064
     Dates: start: 20090101, end: 20100610
  29. ZIDOVUDINE [Suspect]
     Active Substance: ZIDOVUDINE
     Dosage: UNK (MOTHER DOSE: 800 MG QD)
     Route: 064
     Dates: start: 20090110, end: 20100610
  30. ZIDOVUDINE [Suspect]
     Active Substance: ZIDOVUDINE
     Dosage: UNK (MATERNAL DOSE: UNK MG, QD)
     Route: 064
     Dates: start: 20090922, end: 20100610
  31. ZIDOVUDINE [Suspect]
     Active Substance: ZIDOVUDINE
     Dosage: (MATERNAL DOSE: 800 MG, QD)
     Route: 064
     Dates: start: 20100610
  32. ZIDOVUDINE [Suspect]
     Active Substance: ZIDOVUDINE
     Dosage: (MATERNAL DOSE: 800 MG, QD)
     Route: 064
  33. ZIDOVUDINE [Suspect]
     Active Substance: ZIDOVUDINE
     Dosage: UNK (MATERNAL DOSE: 600 MG, QD)
     Route: 064
  34. ZIDOVUDINE [Suspect]
     Active Substance: ZIDOVUDINE
     Dosage: UNK (MATERNAL DOSE: 600 MG, QD)
     Route: 064
  35. ZIDOVUDINE [Suspect]
     Active Substance: ZIDOVUDINE
     Dosage: UNK (MATERNAL DOSE: 600 MG QD)
     Route: 064
     Dates: start: 20090101, end: 20100610
  36. ZIDOVUDINE [Suspect]
     Active Substance: ZIDOVUDINE
     Dosage: UNK (MATERNAL DOSE: 600 MG, QD)
     Route: 064
     Dates: start: 20090110, end: 20100610
  37. ZIDOVUDINE [Suspect]
     Active Substance: ZIDOVUDINE
     Dosage: UNK (MATERNAL DOSE: 600 MG, QD)
     Route: 064
     Dates: start: 20090110, end: 20100610
  38. ZIDOVUDINE [Suspect]
     Active Substance: ZIDOVUDINE
     Dosage: UNK (MATERNAL DOSE: UNK)
     Route: 064
     Dates: start: 20100610
  39. TENOFOVIR DISOPROXIL FUMARATE [Suspect]
     Active Substance: TENOFOVIR DISOPROXIL FUMARATE
     Indication: Foetal exposure during pregnancy
     Dosage: UNK (MOTHER DOSE: UNK)
     Route: 064
     Dates: start: 20100610, end: 20100629
  40. TENOFOVIR DISOPROXIL FUMARATE [Suspect]
     Active Substance: TENOFOVIR DISOPROXIL FUMARATE
     Dosage: UNK (MATERNAL DOSE: 300 MG, QD)
     Route: 064
     Dates: start: 20100610
  41. TENOFOVIR DISOPROXIL FUMARATE [Suspect]
     Active Substance: TENOFOVIR DISOPROXIL FUMARATE
     Dosage: UNK (MOTHER DOSE: 300 MG, QD)
     Route: 064
     Dates: start: 20100610, end: 20100610
  42. TENOFOVIR DISOPROXIL FUMARATE [Suspect]
     Active Substance: TENOFOVIR DISOPROXIL FUMARATE
     Dosage: UNK (MOTHER DOSE: 300 MG, QD)
     Route: 064
     Dates: start: 20100610, end: 20100610
  43. TENOFOVIR DISOPROXIL FUMARATE [Suspect]
     Active Substance: TENOFOVIR DISOPROXIL FUMARATE
     Dosage: UNK (MATERNAL DOSE: 300 MG, QD)
     Route: 064
  44. TENOFOVIR DISOPROXIL FUMARATE [Suspect]
     Active Substance: TENOFOVIR DISOPROXIL FUMARATE
     Dosage: UNK
     Route: 064
     Dates: start: 20100610
  45. TENOFOVIR DISOPROXIL FUMARATE [Suspect]
     Active Substance: TENOFOVIR DISOPROXIL FUMARATE
     Dosage: UNK (MOTHER DOSE: 300 MG, QD)
     Route: 064
     Dates: start: 20100610, end: 20100629
  46. ISENTRESS [Suspect]
     Active Substance: RALTEGRAVIR POTASSIUM
     Indication: Foetal exposure during pregnancy
     Dosage: UNK (MATERNAL DOSE: 1 DOSAGE FORM QD)
     Route: 064
     Dates: start: 20100610
  47. ISENTRESS [Suspect]
     Active Substance: RALTEGRAVIR POTASSIUM
     Dosage: UNK (MOTHER CASE:FORMULATION: TABLET DOSE 1)
     Route: 064
  48. ISENTRESS [Suspect]
     Active Substance: RALTEGRAVIR POTASSIUM
     Dosage: UNK (MATERNAL DOSE: 3200 MG, QD (800 MILLIGRAM, QD(~3200 MILLIGRAM QID DAILY; 800 MILLIGRAM))
     Route: 064
     Dates: start: 20100610
  49. ISENTRESS [Suspect]
     Active Substance: RALTEGRAVIR POTASSIUM
     Dosage: UNK (MATERNAL DOSE; 600 MG, QD)
     Route: 064
  50. ISENTRESS [Suspect]
     Active Substance: RALTEGRAVIR POTASSIUM
     Dosage: UNK ((MATERNAL DOSE: 800 MG, QD)
     Route: 064
     Dates: start: 20100610
  51. ISENTRESS [Suspect]
     Active Substance: RALTEGRAVIR POTASSIUM
     Dosage: UNK
     Route: 064
  52. VIREAD [Suspect]
     Active Substance: TENOFOVIR DISOPROXIL FUMARATE
     Indication: Foetal exposure during pregnancy
     Dosage: UNK
     Route: 064
     Dates: start: 20090922, end: 20100610
  53. VIREAD [Suspect]
     Active Substance: TENOFOVIR DISOPROXIL FUMARATE
     Dosage: UNK (MATERNAL DOSE:300 MILLIGRAM, QD)
     Route: 064
     Dates: start: 20100610, end: 20100629
  54. VIREAD [Suspect]
     Active Substance: TENOFOVIR DISOPROXIL FUMARATE
     Dosage: (MATERNAL DOSE:300 MG, QD)
     Route: 064
  55. VIREAD [Suspect]
     Active Substance: TENOFOVIR DISOPROXIL FUMARATE
     Dosage: UNK
     Route: 064
     Dates: start: 20100610
  56. VIREAD [Suspect]
     Active Substance: TENOFOVIR DISOPROXIL FUMARATE
     Dosage: UNK
     Route: 064
  57. KALETRA [Suspect]
     Active Substance: LOPINAVIR\RITONAVIR
     Indication: Foetal exposure during pregnancy
     Dosage: UNK
     Route: 064
     Dates: start: 20100610
  58. KALETRA [Suspect]
     Active Substance: LOPINAVIR\RITONAVIR
     Dosage: UNK
     Route: 064
     Dates: start: 20100710
  59. KALETRA [Suspect]
     Active Substance: LOPINAVIR\RITONAVIR
     Dosage: UNK
     Route: 064
     Dates: start: 20200610
  60. KALETRA [Suspect]
     Active Substance: LOPINAVIR\RITONAVIR
     Dosage: UNK
     Route: 064
     Dates: start: 20200610
  61. KALETRA [Suspect]
     Active Substance: LOPINAVIR\RITONAVIR
     Dosage: UNK
     Route: 064
     Dates: start: 20200610
  62. KALETRA [Suspect]
     Active Substance: LOPINAVIR\RITONAVIR
     Dosage: UNK
     Route: 064
     Dates: start: 20100710
  63. LOPINAVIR\RITONAVIR [Suspect]
     Active Substance: LOPINAVIR\RITONAVIR
     Indication: Foetal exposure during pregnancy
     Dosage: UNK
     Route: 064
     Dates: start: 20100610, end: 20100629
  64. LOPINAVIR\RITONAVIR [Suspect]
     Active Substance: LOPINAVIR\RITONAVIR
     Dosage: UNK
     Route: 064
  65. LOPINAVIR\RITONAVIR [Suspect]
     Active Substance: LOPINAVIR\RITONAVIR
     Dosage: UNK
     Route: 064
  66. LOPINAVIR\RITONAVIR [Suspect]
     Active Substance: LOPINAVIR\RITONAVIR
     Dosage: UNK
     Route: 064
  67. LOPINAVIR\RITONAVIR [Suspect]
     Active Substance: LOPINAVIR\RITONAVIR
     Dosage: UNK
     Route: 064
  68. LOPINAVIR\RITONAVIR [Suspect]
     Active Substance: LOPINAVIR\RITONAVIR
     Dosage: UNK
     Route: 064
  69. LOPINAVIR\RITONAVIR [Suspect]
     Active Substance: LOPINAVIR\RITONAVIR
     Dosage: UNK
     Route: 064
  70. LOPINAVIR\RITONAVIR [Suspect]
     Active Substance: LOPINAVIR\RITONAVIR
     Dosage: UNK
     Route: 064
  71. RALTEGRAVIR POTASSIUM [Suspect]
     Active Substance: RALTEGRAVIR POTASSIUM
     Indication: Foetal exposure during pregnancy
     Dosage: UNK (PATIENT TAKING MEDICINE AT CONCEPTION 800 MG, QD)
     Route: 064
     Dates: start: 20100610
  72. RALTEGRAVIR POTASSIUM [Suspect]
     Active Substance: RALTEGRAVIR POTASSIUM
     Dosage: UNK (FORMULATION: TABLET DOSE 1. STOP DATE: CONTINUING)
     Route: 064
     Dates: start: 20100610
  73. RALTEGRAVIR POTASSIUM [Suspect]
     Active Substance: RALTEGRAVIR POTASSIUM
     Dosage: UNK (MATERNAL DOSE:800 MG QD)
     Route: 064
  74. RALTEGRAVIR POTASSIUM [Suspect]
     Active Substance: RALTEGRAVIR POTASSIUM
     Dosage: UNK (MATERNAL DOSE: 800 MG, QD (PATIENT NOT TAKING MEDICATION AT CONECPTION)
     Route: 064
  75. RALTEGRAVIR POTASSIUM [Suspect]
     Active Substance: RALTEGRAVIR POTASSIUM
     Dosage: UNK (MATERNAL DOSE: 800 MG, QD (PATIENT NOT TAKING MEDICATION AT CONECPTION))
     Route: 064
     Dates: start: 20100610
  76. RALTEGRAVIR POTASSIUM [Suspect]
     Active Substance: RALTEGRAVIR POTASSIUM
     Dosage: UNK (MATERNAL DOSE: UNK UNK, QD)
     Route: 064
     Dates: start: 20100610
  77. RALTEGRAVIR POTASSIUM [Suspect]
     Active Substance: RALTEGRAVIR POTASSIUM
     Dosage: UNK (MATERNAL DOSE: 1 DOSAGE FORM, QD)
     Route: 064
     Dates: start: 20100610
  78. LOPINAVIR\RITONAVIR [Suspect]
     Active Substance: LOPINAVIR\RITONAVIR
     Indication: Foetal exposure during pregnancy
     Dosage: UNK
     Route: 064
     Dates: start: 20100610, end: 20100629
  79. LOPINAVIR\RITONAVIR [Suspect]
     Active Substance: LOPINAVIR\RITONAVIR
     Dosage: UNK
     Route: 064
     Dates: start: 20100610
  80. LOPINAVIR\RITONAVIR [Suspect]
     Active Substance: LOPINAVIR\RITONAVIR
     Dosage: UNK
     Route: 064
  81. VIRAMUNE [Suspect]
     Active Substance: NEVIRAPINE
     Indication: Foetal exposure during pregnancy
     Dosage: (MATERNAL DOSE: 400 MG, QD)
     Route: 064
     Dates: start: 20090101, end: 20100610
  82. VIRAMUNE [Suspect]
     Active Substance: NEVIRAPINE
     Dosage: UNK
     Route: 064
     Dates: start: 20100610
  83. VIRAMUNE [Suspect]
     Active Substance: NEVIRAPINE
     Dosage: UNK (MATERNAL DOSE: 400 MG, QD)
     Route: 064
     Dates: start: 20100610
  84. RITONAVIR [Suspect]
     Active Substance: RITONAVIR
     Indication: Foetal exposure during pregnancy
     Dosage: UNK
     Route: 064
     Dates: start: 20100629, end: 20100629
  85. RITONAVIR [Suspect]
     Active Substance: RITONAVIR
     Dosage: UNK
     Route: 064
     Dates: start: 20100710

REACTIONS (8)
  - Volvulus [Not Recovered/Not Resolved]
  - Foetal exposure during pregnancy [Unknown]
  - Foetal exposure during pregnancy [Unknown]
  - Foetal exposure during pregnancy [Unknown]
  - Foetal exposure during pregnancy [Unknown]
  - Foetal exposure during pregnancy [Unknown]
  - Foetal exposure during pregnancy [Unknown]
  - Foetal exposure during pregnancy [Unknown]

NARRATIVE: CASE EVENT DATE: 20100610
